FAERS Safety Report 20946293 (Version 1)
Quarter: 2022Q2

REPORT INFORMATION
  Report Type: Spontaneous
  Country: US (occurrence: None)
  Receive Date: 20220610
  Receipt Date: 20220610
  Transmission Date: 20220720
  Serious: Yes (Death, Hospitalization)
  Sender: FDA-Public Use
  Company Number: None

PATIENT
  Age: 59 Year
  Sex: Male
  Weight: 72.1 kg

DRUGS (1)
  1. CISPLATIN [Suspect]
     Active Substance: CISPLATIN
     Dates: end: 20130311

REACTIONS (7)
  - Hypoxia [None]
  - Lethargy [None]
  - Respiratory failure [None]
  - Acute respiratory distress syndrome [None]
  - Pneumonia aspiration [None]
  - Bacteraemia [None]
  - Fungaemia [None]

NARRATIVE: CASE EVENT DATE: 20220415
